FAERS Safety Report 24015951 (Version 1)
Quarter: 2024Q2

REPORT INFORMATION
  Report Type: Report from Study
  Country: ZA (occurrence: ZA)
  Receive Date: 20240626
  Receipt Date: 20240626
  Transmission Date: 20240715
  Serious: Yes (Other)
  Sender: FDA-Public Use
  Company Number: ZA-AstraZeneca-2024-228588

PATIENT
  Sex: Male

DRUGS (1)
  1. SYNAGIS [Suspect]
     Active Substance: PALIVIZUMAB
     Indication: Respiratory syncytial virus infection
     Dosage: 15 MG/KG EVERY FOUR WEEKS
     Route: 030
     Dates: start: 20240117

REACTIONS (2)
  - Influenza [Unknown]
  - Intentional dose omission [Unknown]
